FAERS Safety Report 22039922 (Version 3)
Quarter: 2023Q1

REPORT INFORMATION
  Report Type: Spontaneous
  Country: NZ (occurrence: NZ)
  Receive Date: 20230227
  Receipt Date: 20230302
  Transmission Date: 20230417
  Serious: Yes (Other)
  Sender: FDA-Public Use
  Company Number: NZ-JNJFOC-20230245307

PATIENT
  Age: 50 Year
  Sex: Male

DRUGS (5)
  1. INVEGA SUSTENNA [Suspect]
     Active Substance: PALIPERIDONE PALMITATE
     Indication: Product used for unknown indication
     Route: 030
  2. INVEGA SUSTENNA [Suspect]
     Active Substance: PALIPERIDONE PALMITATE
  3. INVEGA SUSTENNA [Suspect]
     Active Substance: PALIPERIDONE PALMITATE
  4. METHADONE [Concomitant]
     Active Substance: METHADONE HYDROCHLORIDE
  5. EPIRUBICIN HYDROCHLORIDE [Concomitant]
     Active Substance: EPIRUBICIN HYDROCHLORIDE

REACTIONS (1)
  - Hallucination, auditory [Not Recovered/Not Resolved]
